FAERS Safety Report 9725330 (Version 3)
Quarter: 2014Q2

REPORT INFORMATION
  Report Type: Spontaneous
  Country: US (occurrence: US)
  Receive Date: 20131203
  Receipt Date: 20140428
  Transmission Date: 20141212
  Serious: Yes (Hospitalization, Other)
  Sender: FDA-Public Use
  Company Number: US-BAYER-2013-142085

PATIENT
  Age: 33 Year
  Sex: Female
  Weight: 53.06 kg

DRUGS (3)
  1. MIRENA [Suspect]
     Indication: CONTRACEPTION
     Dosage: 20 MCG/24HR, CONT
     Route: 015
     Dates: start: 20060818, end: 20101125
  2. MIRENA [Suspect]
     Indication: CONTRACEPTION
     Dosage: 20 MCG/24HR, CONT
     Route: 015
     Dates: start: 200606, end: 20101121
  3. LORTAB [Concomitant]

REACTIONS (10)
  - Uterine perforation [None]
  - Small intestinal obstruction [None]
  - Gastrointestinal tract irritation [None]
  - Abdominal pain [None]
  - Nausea [None]
  - Vomiting [None]
  - Injury [None]
  - Pain [None]
  - Emotional distress [None]
  - Adhesion [None]
